FAERS Safety Report 4273029-4 (Version None)
Quarter: 2004Q1

REPORT INFORMATION
  Report Type: 
  Country: None (occurrence: None)
  Receive Date: 20040114
  Receipt Date: 20040102
  Transmission Date: 20041129
  Serious: Yes (Life-Threatening)
  Sender: FDA-Public Use
  Company Number: A06200400001

PATIENT
  Age: 78 Year
  Sex: Male

DRUGS (1)
  1. (OXALIPLATIN) - POWDER [Suspect]
     Route: 041

REACTIONS (2)
  - METABOLIC ACIDOSIS [None]
  - RESPIRATORY FAILURE [None]
